FAERS Safety Report 5323969-X (Version None)
Quarter: 2007Q2

REPORT INFORMATION
  Report Type: 
  Country: None (occurrence: None)
  Receive Date: 20070509
  Receipt Date: 20070509
  Transmission Date: 20071010
  Serious: Yes (Life-Threatening, Hospitalization, Other)
  Sender: FDA-Public Use
  Company Number: None

PATIENT
  Age: 20 Year
  Sex: Female
  Weight: 58.9676 kg

DRUGS (3)
  1. CYCLESSA [Suspect]
     Indication: HORMONE LEVEL ABNORMAL
     Dosage: 1 A DAY PO
     Route: 048
     Dates: start: 20070415, end: 20070429
  2. COUMADIN [Concomitant]
  3. LOVENOX [Concomitant]

REACTIONS (5)
  - DEEP VEIN THROMBOSIS [None]
  - HEART RATE INCREASED [None]
  - INTRACARDIAC THROMBUS [None]
  - LOSS OF CONSCIOUSNESS [None]
  - PULMONARY EMBOLISM [None]
